FAERS Safety Report 8487362 (Version 3)
Quarter: 2014Q1

REPORT INFORMATION
  Report Type: Spontaneous
  Country: US (occurrence: US)
  Receive Date: 20120402
  Receipt Date: 20140331
  Transmission Date: 20141002
  Serious: Yes (Death)
  Sender: FDA-Public Use
  Company Number: US-GE HEALTHCARE MEDICAL DIAGNOSTICS-OSCN-PR-1203S-0055

PATIENT
  Age: 52 Year
  Sex: Female

DRUGS (5)
  1. OMNISCAN [Suspect]
     Indication: LYMPHOMA
     Dates: start: 20020610, end: 20020610
  2. OMNISCAN [Suspect]
     Indication: PANCYTOPENIA
     Dates: start: 20020624, end: 20020624
  3. MAGNEVIST [Suspect]
     Indication: LYMPHOMA
     Dates: start: 19970911, end: 19970911
  4. EPOGEN [Concomitant]
  5. COUMADIN [Concomitant]

REACTIONS (1)
  - Nephrogenic systemic fibrosis [Fatal]
